FAERS Safety Report 6842603-0 (Version None)
Quarter: 2010Q3

REPORT INFORMATION
  Report Type: 
  Country: None (occurrence: None)
  Receive Date: 20100714
  Receipt Date: 20070730
  Transmission Date: 20110219
  Serious: No
  Sender: FDA-Public Use
  Company Number: US-PFIZER INC-2007064392

PATIENT
  Sex: Female
  Weight: 77.2 kg

DRUGS (7)
  1. CHANTIX [Suspect]
     Indication: SMOKING CESSATION THERAPY
     Dates: start: 20070722
  2. DETROL [Concomitant]
  3. COZAAR [Concomitant]
  4. CLONAZEPAM [Concomitant]
  5. METOPROLOL [Concomitant]
  6. LEXAPRO [Concomitant]
  7. PRAVASTATIN [Concomitant]

REACTIONS (3)
  - NAUSEA [None]
  - RETCHING [None]
  - VOMITING [None]
